FAERS Safety Report 7531597-0 (Version None)
Quarter: 2011Q2

REPORT INFORMATION
  Report Type: 
  Country: None (occurrence: None)
  Receive Date: 20110608
  Receipt Date: 20110526
  Transmission Date: 20111010
  Serious: Yes (Hospitalization, Other)
  Sender: FDA-Public Use
  Company Number: US-CELGENEUS-163-21880-11041758

PATIENT
  Sex: Male

DRUGS (13)
  1. PERCOCET [Concomitant]
     Route: 065
  2. MULTI-VITAMINS [Concomitant]
     Route: 065
  3. CIPROFLOXACIN HCL [Concomitant]
  4. RYTHMOL [Concomitant]
     Route: 065
     Dates: start: 20101201
  5. CIPROFLOXACIN HCL [Concomitant]
     Route: 065
     Dates: start: 20101201
  6. INSULIN [Concomitant]
     Route: 065
  7. REVLIMID [Suspect]
     Dosage: 10 MILLIGRAM
     Route: 048
     Dates: start: 20101201
  8. TEMAZEPAM [Concomitant]
     Dosage: 50 MILLIGRAM
     Route: 065
  9. COMPAZINE [Concomitant]
     Dosage: 10 MILLIGRAM
     Route: 065
  10. CELEXA [Concomitant]
     Dosage: 20 MILLIGRAM
     Route: 065
  11. DEXAMETHASONE [Concomitant]
     Dosage: 4 MILLIGRAM
     Route: 065
  12. REVLIMID [Suspect]
     Indication: MULTIPLE MYELOMA
     Dosage: 10 MILLIGRAM
     Route: 048
     Dates: start: 20100816
  13. ASPIRIN [Concomitant]
     Indication: PROPHYLAXIS
     Route: 065

REACTIONS (12)
  - VENOUS STENOSIS [None]
  - ATRIAL FIBRILLATION [None]
  - NERVE ROOT COMPRESSION [None]
  - ATRIAL FLUTTER [None]
  - BRACHIOCEPHALIC VEIN STENOSIS [None]
  - PANCYTOPENIA [None]
  - COAGULOPATHY [None]
  - COUGH [None]
  - SUPERIOR VENA CAVAL STENOSIS [None]
  - CEREBROVASCULAR ACCIDENT [None]
  - NEUROPATHY PERIPHERAL [None]
  - MEDICAL DEVICE PAIN [None]
